FAERS Safety Report 24065080 (Version 1)
Quarter: 2024Q3

REPORT INFORMATION
  Report Type: Spontaneous
  Country: JP (occurrence: JP)
  Receive Date: 20240709
  Receipt Date: 20240709
  Transmission Date: 20241017
  Serious: Yes (Other)
  Sender: BRISTOL MYERS SQUIBB
  Company Number: JP-BRISTOL-MYERS SQUIBB COMPANY-2024-107710

PATIENT
  Age: 92 Year
  Sex: Female
  Weight: 47.8 kg

DRUGS (1)
  1. ELIQUIS [Suspect]
     Active Substance: APIXABAN
     Indication: Embolism venous
     Route: 048

REACTIONS (3)
  - Renal impairment [Unknown]
  - Contraindicated product administered [Unknown]
  - Underweight [Unknown]

NARRATIVE: CASE EVENT DATE: 20240701
